FAERS Safety Report 11173771 (Version 1)
Quarter: 2015Q2

REPORT INFORMATION
  Report Type: Spontaneous
  Country: US (occurrence: None)
  Receive Date: 20150605
  Receipt Date: 20150605
  Transmission Date: 20150821
  Serious: Yes (Life-Threatening, Other)
  Sender: FDA-Public Use
  Company Number: COL_19871_2015

PATIENT
  Age: 58 Year
  Sex: Female

DRUGS (1)
  1. COLGATE TOTAL LASTING WHITE POLAR FRESHMINT [Suspect]
     Active Substance: SODIUM FLUORIDE
     Dosage: HALF A CAP/ONCE/ORAL
     Route: 048
     Dates: end: 20150512

REACTIONS (3)
  - Anaphylactic shock [None]
  - Aphthous stomatitis [None]
  - Oral pain [None]

NARRATIVE: CASE EVENT DATE: 20150512
